FAERS Safety Report 25676753 (Version 3)
Quarter: 2025Q4

REPORT INFORMATION
  Report Type: Report from Study
  Country: US (occurrence: US)
  Receive Date: 20250813
  Receipt Date: 20251211
  Transmission Date: 20260118
  Serious: Yes (Other)
  Sender: TRAVERE THERAPEUTICS
  Company Number: US-TRAVERE-2025TVT01360

PATIENT
  Age: 60 Year
  Sex: Male
  Weight: 118 kg

DRUGS (15)
  1. FILSPARI [Suspect]
     Active Substance: SPARSENTAN
     Indication: IgA nephropathy
     Route: 048
     Dates: start: 20250322, end: 20250404
  2. FILSPARI [Suspect]
     Active Substance: SPARSENTAN
     Route: 048
     Dates: start: 20250405
  3. ATORVASTATIN [Concomitant]
     Active Substance: ATORVASTATIN
  4. CARDURA [Concomitant]
     Active Substance: DOXAZOSIN MESYLATE
  5. HYDRALAZINE [Concomitant]
     Active Substance: HYDRALAZINE HYDROCHLORIDE
  6. HYDROCHLOROTHIAZIDE [Concomitant]
     Active Substance: HYDROCHLOROTHIAZIDE
  7. ASPIRIN [Concomitant]
     Active Substance: ASPIRIN
  8. FABHALTA [Concomitant]
     Active Substance: IPTACOPAN HYDROCHLORIDE
  9. FLONASE [Concomitant]
     Active Substance: FLUTICASONE PROPIONATE
  10. FISH OIL [Concomitant]
     Active Substance: FISH OIL
  11. LOSARTAN POTASSIUM [Concomitant]
     Active Substance: LOSARTAN POTASSIUM
  12. TOPROL XL [Concomitant]
     Active Substance: METOPROLOL SUCCINATE
  13. PAROXETINE [Concomitant]
     Active Substance: PAROXETINE
  14. PROTONIX [Concomitant]
     Active Substance: PANTOPRAZOLE SODIUM
  15. TRESIBA [Concomitant]
     Active Substance: INSULIN DEGLUDEC

REACTIONS (7)
  - Craniofacial fracture [Unknown]
  - Loss of consciousness [Unknown]
  - Hypotension [Unknown]
  - Blood glucose decreased [Unknown]
  - Contusion [Unknown]
  - Fall [Unknown]
  - Contraindicated product administered [Unknown]

NARRATIVE: CASE EVENT DATE: 20250428
